FAERS Safety Report 24608744 (Version 5)
Quarter: 2024Q4

REPORT INFORMATION
  Report Type: Spontaneous
  Country: US (occurrence: US)
  Receive Date: 20241112
  Receipt Date: 20241227
  Transmission Date: 20250115
  Serious: No
  Sender: KARYOPHARM THERAPEUTICS
  Company Number: US-KARYOPHARM-2024KPT001759

PATIENT

DRUGS (11)
  1. XPOVIO [Suspect]
     Active Substance: SELINEXOR
     Indication: Plasma cell myeloma
     Dosage: 40 MG, WEEKLY
     Route: 048
     Dates: start: 20241029, end: 2024
  2. ACYCLOVIR [Concomitant]
     Active Substance: ACYCLOVIR
  3. AMIODARONE [Concomitant]
     Active Substance: AMIODARONE
  4. DEXAMETHASONE [Concomitant]
     Active Substance: DEXAMETHASONE
  5. SPIRONOLACTONE [Concomitant]
     Active Substance: SPIRONOLACTONE
  6. ONDANSETRON [Concomitant]
     Active Substance: ONDANSETRON
  7. ELIQUIS [Concomitant]
     Active Substance: APIXABAN
  8. ENTRESTO [Concomitant]
     Active Substance: SACUBITRIL\VALSARTAN
  9. JARDIANCE [Concomitant]
     Active Substance: EMPAGLIFLOZIN
  10. LASIX [Concomitant]
     Active Substance: FUROSEMIDE
  11. LATANOPROST [Concomitant]
     Active Substance: LATANOPROST

REACTIONS (3)
  - Diarrhoea [Not Recovered/Not Resolved]
  - Fatigue [Unknown]
  - Nausea [Unknown]

NARRATIVE: CASE EVENT DATE: 20240101
